FAERS Safety Report 5746518-0 (Version None)
Quarter: 2008Q2

REPORT INFORMATION
  Report Type: 
  Country: None (occurrence: None)
  Receive Date: 20080522
  Receipt Date: 20070606
  Transmission Date: 20081010
  Serious: Yes (Death, Hospitalization, Other)
  Sender: FDA-Public Use
  Company Number: US-BRISTOL-MYERS SQUIBB COMPANY-13789342

PATIENT
  Age: 40 Year
  Sex: Female
  Weight: 113 kg

DRUGS (2)
  1. CYTOXAN [Suspect]
     Indication: MULTIPLE SCLEROSIS
     Route: 042
  2. NOVANTRONE [Suspect]
     Indication: MULTIPLE SCLEROSIS
     Route: 042

REACTIONS (1)
  - LEUKAEMIA [None]
